FAERS Safety Report 5701649-6 (Version None)
Quarter: 2008Q2

REPORT INFORMATION
  Report Type: 
  Country: None (occurrence: None)
  Receive Date: 20080411
  Receipt Date: 20080402
  Transmission Date: 20081010
  Serious: Yes (Other)
  Sender: FDA-Public Use
  Company Number: JP-JNJFOC-20080401477

PATIENT
  Age: 43 Year
  Sex: Female

DRUGS (1)
  1. HALOPERIDOL DECANOATE [Suspect]
     Indication: DRUG USE FOR UNKNOWN INDICATION
     Route: 030

REACTIONS (5)
  - AUTONOMIC NERVOUS SYSTEM IMBALANCE [None]
  - DRUG LEVEL INCREASED [None]
  - NEUROLEPTIC MALIGNANT SYNDROME [None]
  - PYREXIA [None]
  - TACHYCARDIA [None]
